FAERS Safety Report 5241767-2 (Version None)
Quarter: 2007Q1

REPORT INFORMATION
  Report Type: 
  Country: None (occurrence: None)
  Receive Date: 20070220
  Receipt Date: 20070213
  Transmission Date: 20070707
  Serious: Yes (Death)
  Sender: FDA-Public Use
  Company Number: 2006SE06595

PATIENT
  Age: 4 Year
  Sex: Female

DRUGS (2)
  1. PROPOFOL [Suspect]
     Dosage: INITIALLY 12 MG/KG/H DECREASED TO 11 MG/KG/H. AFTER 3 H DECREASED TO 10 MG/KG/H.
  2. CEFOTAXIME [Concomitant]
     Dosage: 150 MG/KG/24 H

REACTIONS (1)
  - PROPOFOL INFUSION SYNDROME [None]
